FAERS Safety Report 11892666 (Version 7)
Quarter: 2016Q1

REPORT INFORMATION
  Report Type: Report from Study
  Country: JP (occurrence: JP)
  Receive Date: 20160106
  Receipt Date: 20160307
  Transmission Date: 20160526
  Serious: Yes (Hospitalization, Other)
  Sender: FDA-Public Use
  Company Number: JP-GLAXOSMITHKLINE-JP2016000198

PATIENT
  Age: 68 Year
  Sex: Male
  Weight: 41.1 kg

DRUGS (15)
  1. NEO-SYNESIN [Concomitant]
     Active Substance: PHENYLEPHRINE HYDROCHLORIDE
     Indication: ANAESTHESIA
     Route: 042
     Dates: start: 20151231, end: 20151231
  2. SULBACILLIN [Concomitant]
     Active Substance: AMPICILLIN SODIUM\SULBACTAM SODIUM
     Indication: INFECTION PROPHYLAXIS
     Route: 042
     Dates: start: 20151231, end: 20160110
  3. ANETOCAINE JELLY 2% [Concomitant]
     Indication: CATHETER PLACEMENT
  4. OMEPRAL INJECTION [Concomitant]
     Active Substance: OMEPRAZOLE
     Indication: PROPHYLAXIS
  5. ANETOCAINE JELLY 2% [Concomitant]
     Indication: ENDOTRACHEAL INTUBATION
     Route: 061
     Dates: start: 20151231, end: 20151231
  6. FLUTICASONE FUROATE + VILANTEROL TRIFENATATE [Suspect]
     Active Substance: FLUTICASONE FUROATE\VILANTEROL TRIFENATATE
     Indication: CHRONIC OBSTRUCTIVE PULMONARY DISEASE
     Dosage: 100/25 UG, QD
     Route: 055
     Dates: start: 20150425, end: 20151231
  7. SALTANOL [Suspect]
     Active Substance: ALBUTEROL SULFATE
     Indication: CHRONIC OBSTRUCTIVE PULMONARY DISEASE
     Route: 055
     Dates: start: 20150326, end: 20151231
  8. BROMHEXINE HYDROCHLORIDE [Concomitant]
     Active Substance: BROMHEXINE HYDROCHLORIDE
     Indication: PRODUCTIVE COUGH
     Route: 042
     Dates: start: 20151231, end: 20151231
  9. OMEPRAL INJECTION [Concomitant]
     Active Substance: OMEPRAZOLE
     Indication: GASTRIC MUCOSAL LESION
     Route: 042
     Dates: start: 20151231, end: 20151231
  10. FREEDOCAINE INJECTION [Concomitant]
     Indication: CATHETER PLACEMENT
     Route: 042
     Dates: start: 20151231, end: 20151231
  11. MIDAZOLAM [Concomitant]
     Active Substance: MIDAZOLAM\MIDAZOLAM HYDROCHLORIDE
     Indication: ANAESTHESIA
     Route: 042
     Dates: start: 20151231, end: 20151231
  12. XYLOCAINE [Concomitant]
     Active Substance: LIDOCAINE HYDROCHLORIDE
     Indication: ENDOTRACHEAL INTUBATION
     Route: 061
     Dates: start: 20151231, end: 20151231
  13. ZOSYN [Concomitant]
     Active Substance: PIPERACILLIN SODIUM\TAZOBACTAM SODIUM
     Indication: INFECTION PROPHYLAXIS
     Route: 042
     Dates: start: 20160111, end: 20160118
  14. HEPARIN NA LOCK [Concomitant]
     Indication: THROMBOSIS PROPHYLAXIS
     Route: 042
     Dates: start: 20151231, end: 20151231
  15. LEPETAN INJECTION [Concomitant]
     Active Substance: BUPRENORPHINE HYDROCHLORIDE
     Indication: ANAESTHESIA
     Route: 042
     Dates: start: 20151231, end: 20151231

REACTIONS (3)
  - Hypokalaemia [None]
  - Ventricular fibrillation [Recovered/Resolved]
  - Cardio-respiratory arrest [None]

NARRATIVE: CASE EVENT DATE: 20151231
